FAERS Safety Report 4693990-3 (Version None)
Quarter: 2005Q2

REPORT INFORMATION
  Report Type: 
  Country: None (occurrence: None)
  Receive Date: 20050616
  Receipt Date: 20050603
  Transmission Date: 20051028
  Serious: Yes (Other)
  Sender: FDA-Public Use
  Company Number: 2005086493

PATIENT
  Sex: Male

DRUGS (3)
  1. NEURONTIN [Suspect]
     Indication: HYPOAESTHESIA
  2. NEURONTIN [Suspect]
     Indication: NEURALGIA
  3. CRIXIVAN [Suspect]
     Indication: ILL-DEFINED DISORDER

REACTIONS (15)
  - ALANINE AMINOTRANSFERASE INCREASED [None]
  - BLOOD HIV RNA INCREASED [None]
  - BLOOD PRESSURE INCREASED [None]
  - CONVULSION [None]
  - DEPRESSION [None]
  - GASTROINTESTINAL DISORDER [None]
  - HYPOAESTHESIA [None]
  - IMMUNE SYSTEM DISORDER [None]
  - LIPOMA [None]
  - NERVE INJURY [None]
  - NERVOUSNESS [None]
  - OVERDOSE [None]
  - PAIN [None]
  - SLEEP DISORDER [None]
  - SUICIDAL IDEATION [None]
